FAERS Safety Report 10229648 (Version 1)
Quarter: 2014Q2

REPORT INFORMATION
  Report Type: Spontaneous
  Country: US (occurrence: None)
  Receive Date: 20140609
  Receipt Date: 20140609
  Transmission Date: 20141212
  Serious: Yes (Other)
  Sender: FDA-Public Use
  Company Number: AUR-APL-2014-06114

PATIENT
  Age: 22 Year
  Sex: Male

DRUGS (2)
  1. TRIMETHOPRIM+SULFAMETHOXAZOLE (TRIMETHOPRIM, SULFAMETHOXAZOLE) [Suspect]
     Indication: ACNE
     Dosage: 960 MG (480 MG, 2 IN 1 D)
  2. TRIMETHOPRIM+SULFAMETHOXAZOLE (TRIMETHOPRIM, SULFAMETHOXAZOLE) [Suspect]
     Indication: RASH PUSTULAR
     Dosage: 960 MG (480 MG, 2 IN 1 D)

REACTIONS (9)
  - Hypersensitivity vasculitis [None]
  - Papule [None]
  - Rash pruritic [None]
  - Blister [None]
  - Protein urine present [None]
  - Blood urine present [None]
  - Complement factor C3 decreased [None]
  - Complement factor C4 decreased [None]
  - Oedema peripheral [None]
